FAERS Safety Report 11970016 (Version 1)
Quarter: 2016Q1

REPORT INFORMATION
  Report Type: Spontaneous
  Country: US (occurrence: US)
  Receive Date: 20160128
  Receipt Date: 20160128
  Transmission Date: 20160526
  Serious: Yes (Hospitalization)
  Sender: FDA-Public Use
  Company Number: CHPA2015US015160

PATIENT
  Age: 62 Year
  Sex: Male

DRUGS (3)
  1. GAS-X EXTRA STRENGTH SOFTGELS [Suspect]
     Active Substance: DIMETHICONE
     Indication: ABDOMINAL DISTENSION
     Dosage: 2 DF, PRN
     Route: 048
     Dates: start: 201509, end: 20151215
  2. LASIX [Concomitant]
     Active Substance: FUROSEMIDE
     Indication: PRODUCT USED FOR UNKNOWN INDICATION
     Dosage: UNK
     Route: 065
  3. GAS-X EXTRA STRENGTH SOFTGELS [Suspect]
     Active Substance: DIMETHICONE
     Indication: FLATULENCE
     Dosage: 1 DF, PRN
     Route: 048
     Dates: start: 201509, end: 20151215

REACTIONS (12)
  - Rash [Recovering/Resolving]
  - Swelling [Recovering/Resolving]
  - Skin exfoliation [Recovering/Resolving]
  - Constipation [Recovering/Resolving]
  - Erythema [Recovering/Resolving]
  - Urticaria [Recovering/Resolving]
  - Chest discomfort [Recovering/Resolving]
  - Blister [Recovering/Resolving]
  - Dyspnoea [Recovering/Resolving]
  - Urine output decreased [Recovering/Resolving]
  - Flatulence [Unknown]
  - Pruritus [Recovering/Resolving]

NARRATIVE: CASE EVENT DATE: 201509
